FAERS Safety Report 6458789-6 (Version None)
Quarter: 2009Q4

REPORT INFORMATION
  Report Type: 
  Country: None (occurrence: None)
  Receive Date: 20091127
  Receipt Date: 20091125
  Transmission Date: 20100525
  Serious: Yes (Hospitalization, Other)
  Sender: FDA-Public Use
  Company Number: DE-BRISTOL-MYERS SQUIBB COMPANY-14336317

PATIENT
  Age: 43 Year
  Sex: Female
  Weight: 66 kg

DRUGS (5)
  1. TAXOL [Suspect]
     Indication: BREAST CANCER
     Dosage: TAKEN ON 09-JUL-2008 RECENT INF:01OCT08:67.5MG/M2
     Route: 042
     Dates: start: 20080709, end: 20081001
  2. ENDOXAN [Suspect]
     Indication: BREAST CANCER
     Dosage: TAKEN FROM 18APR2008
     Route: 042
     Dates: start: 20080625, end: 20080625
  3. XELODA [Suspect]
     Indication: BREAST CANCER
     Dosage: TAKEN TILL 04SEP2008 TAKEN ONCE DAILY FOR 2 WEEKS STARTING EVERY 3 WEEKS RECENT DOSE:02OCT08:
     Route: 048
     Dates: start: 20080709, end: 20081002
  4. EPIRUBICIN [Suspect]
     Indication: BREAST CANCER
     Dosage: TAKEN FROM 18APR2008
     Route: 042
     Dates: start: 20080625, end: 20080625
  5. MARCUMAR [Concomitant]
     Route: 048
     Dates: start: 20080401, end: 20090401

REACTIONS (4)
  - ASTHENIA [None]
  - DIARRHOEA [None]
  - HYPOKALAEMIA [None]
  - WEIGHT DECREASED [None]
